FAERS Safety Report 13851259 (Version 1)
Quarter: 2017Q3

REPORT INFORMATION
  Report Type: Spontaneous
  Country: PT (occurrence: PT)
  Receive Date: 20170809
  Receipt Date: 20170809
  Transmission Date: 20171127
  Serious: Yes (Other)
  Sender: FDA-Public Use
  Company Number: PT-009507513-1708PRT001731

PATIENT
  Sex: Male

DRUGS (4)
  1. ISENTRESS [Suspect]
     Active Substance: RALTEGRAVIR POTASSIUM
     Dosage: UNK
     Route: 064
     Dates: start: 2017
  2. COMBIVIR [Suspect]
     Active Substance: LAMIVUDINE\ZIDOVUDINE
     Route: 064
  3. DARUNAVIR [Suspect]
     Active Substance: DARUNAVIR
     Route: 064
  4. KALETRA [Suspect]
     Active Substance: LOPINAVIR\RITONAVIR
     Route: 064

REACTIONS (2)
  - Foetal exposure during pregnancy [Recovered/Resolved]
  - Neonatal respiratory failure [Recovered/Resolved]

NARRATIVE: CASE EVENT DATE: 2017
